FAERS Safety Report 10196977 (Version 1)
Quarter: 2014Q2

REPORT INFORMATION
  Report Type: Spontaneous
  Country: US (occurrence: None)
  Receive Date: 20140523
  Receipt Date: 20140523
  Transmission Date: 20141212
  Serious: Yes (Hospitalization)
  Sender: FDA-Public Use
  Company Number: None

PATIENT
  Age: 46 Year
  Sex: Female

DRUGS (8)
  1. INSULIN GLARGINE [Suspect]
     Indication: HYPERGLYCAEMIA
     Dosage: 40 UNITS
     Route: 058
     Dates: start: 20140410, end: 20140410
  2. CEFEPIME [Concomitant]
  3. DOXYCYCLINE [Concomitant]
  4. GABAPENTIN [Concomitant]
  5. INSULIN [Concomitant]
  6. LEVOFLOXACIN [Concomitant]
  7. PREDNISONE [Concomitant]
  8. VANCOMYCIN [Concomitant]

REACTIONS (2)
  - Osteomyelitis [None]
  - Hypoglycaemia [None]
